FAERS Safety Report 18672631 (Version 1)
Quarter: 2020Q4

REPORT INFORMATION
  Report Type: Spontaneous
  Country: VN (occurrence: VN)
  Receive Date: 20201228
  Receipt Date: 20201228
  Transmission Date: 20210114
  Serious: Yes (Hospitalization)
  Sender: FDA-Public Use
  Company Number: NVSC2020VN341035

PATIENT
  Sex: Female
  Weight: 49 kg

DRUGS (3)
  1. VOLTAREN [Suspect]
     Active Substance: DICLOFENAC SODIUM
     Indication: SCIATICA
     Dosage: 75 MG, QD
     Route: 065
     Dates: start: 20200831, end: 20200831
  2. DOPAGAN [Concomitant]
     Indication: PRODUCT USED FOR UNKNOWN INDICATION
     Dosage: UNK
     Route: 065
     Dates: start: 20200831, end: 20200831
  3. VITAMIN B 1-6-12 [Concomitant]
     Active Substance: CYANOCOBALAMIN\PYRIDOXINE\THIAMINE
     Indication: PRODUCT USED FOR UNKNOWN INDICATION
     Dosage: UNK (CONCENTRATION: 100 MG+200MG+200 MG)
     Route: 065
     Dates: start: 20200831, end: 20200831

REACTIONS (4)
  - Rales [Recovering/Resolving]
  - Product use in unapproved indication [Unknown]
  - Dyspnoea [Recovering/Resolving]
  - Hypopnoea [Recovering/Resolving]

NARRATIVE: CASE EVENT DATE: 20200831
